FAERS Safety Report 14142555 (Version 1)
Quarter: 2017Q4

REPORT INFORMATION
  Report Type: Spontaneous
  Country: US (occurrence: US)
  Receive Date: 20171030
  Receipt Date: 20171030
  Transmission Date: 20180321
  Serious: Yes (Hospitalization, Other)
  Sender: FDA-Public Use
  Company Number: US-ELI_LILLY_AND_COMPANY-US201710007203

PATIENT
  Sex: Male

DRUGS (3)
  1. HUMALOG [Suspect]
     Active Substance: INSULIN LISPRO
     Indication: TYPE 2 DIABETES MELLITUS
     Dosage: UNK UNK, SLIDING SCALE
     Route: 058
     Dates: start: 2002
  2. LANTUS [Concomitant]
     Active Substance: INSULIN GLARGINE
     Indication: TYPE 2 DIABETES MELLITUS
     Dosage: 15 U, EACH EVENING
     Route: 065
     Dates: start: 2002
  3. HUMALOG [Suspect]
     Active Substance: INSULIN LISPRO
     Dosage: UNK UNK, SLIDING SCALE
     Route: 058
     Dates: start: 201710

REACTIONS (9)
  - Weight decreased [Unknown]
  - Blood potassium increased [Recovered/Resolved]
  - Blood potassium decreased [Recovered/Resolved]
  - Implant site infection [Recovered/Resolved]
  - Clostridium difficile infection [Recovered/Resolved]
  - Hypotension [Recovered/Resolved]
  - Infection [Unknown]
  - Incorrect dose administered [Unknown]
  - Renal failure [Unknown]

NARRATIVE: CASE EVENT DATE: 2014
